FAERS Safety Report 20963379 (Version 1)
Quarter: 2022Q2

REPORT INFORMATION
  Report Type: Spontaneous
  Country: GB (occurrence: GB)
  Receive Date: 20220615
  Receipt Date: 20220615
  Transmission Date: 20220721
  Serious: Yes (Other)
  Sender: FDA-Public Use
  Company Number: None

PATIENT
  Age: 85 Year
  Sex: Male
  Weight: 84 kg

DRUGS (12)
  1. ATORVASTATIN [Suspect]
     Active Substance: ATORVASTATIN
     Indication: Product used for unknown indication
     Dosage: 40 MILLIGRAM, QD (TAKE ONE TABLET ONCE A DAY)
     Dates: start: 20211122, end: 20220530
  2. ASPIRIN [Concomitant]
     Active Substance: ASPIRIN
     Dosage: 1 DOSAGE FORM, QD  (ONCE A DAY WITH OR AFTER FOOD)
     Dates: start: 20210915
  3. AVEENO [Concomitant]
     Active Substance: DIMETHICONE\HOMOSALATE\OCTINOXATE\OCTISALATE\TITANIUM DIOXIDE
     Dosage: UNK, AS DIRECTED
     Dates: start: 20210401
  4. BISOPROLOL [Concomitant]
     Active Substance: BISOPROLOL
     Dosage: 1 DOSAGE FORM, QD (TAKE ONE TABLET ONCE A DAY)
     Dates: start: 20220309
  5. ISOPROPYL MYRISTATE\MINERAL OIL [Concomitant]
     Active Substance: ISOPROPYL MYRISTATE\MINERAL OIL
     Dosage: 1 DOSAGE FORM, BID (APPLY TWICE TAILY)
     Dates: start: 20190911
  6. NITROGLYCERIN [Concomitant]
     Active Substance: NITROGLYCERIN
     Dosage: UNK, USE ONE TO TWO SPRAYS UNDER THE TONGUE WHEN REQ
     Dates: start: 20210611
  7. HYDROXYZINE [Concomitant]
     Active Substance: HYDROXYZINE HYDROCHLORIDE
     Dosage: 5 MILLILITER, QD (NIGHTLY)
     Dates: start: 20130117
  8. LISINOPRIL [Concomitant]
     Active Substance: LISINOPRIL
     Dosage: 1 DOSAGE FORM, QD (TAKE ONE TABLET ONCE A DAY)
     Dates: start: 20211020
  9. MOMETASONE [Concomitant]
     Active Substance: MOMETASONE
     Dosage: UNK, PRN, AS REQUIRED
     Dates: start: 20130117, end: 20220530
  10. SIMVASTATIN [Concomitant]
     Active Substance: SIMVASTATIN
     Dosage: 1 DOSAGE FORM, QD (NIGHTLY)
     Dates: start: 20220530
  11. TAMSULOSIN HYDROCHLORIDE [Concomitant]
     Active Substance: TAMSULOSIN HYDROCHLORIDE
     Dosage: 1 DOSAGE FORM, BIWEEKLY (TAKE 1 TWICE WEEKLY)
     Dates: start: 20210511
  12. Hydromol [Concomitant]
     Dosage: 1 DOSAGE FORM, BID (EMOLLIENT, APPLY TWICE DAILY)
     Dates: start: 20190911, end: 20220530

REACTIONS (2)
  - Rash papular [Unknown]
  - Skin exfoliation [Unknown]

NARRATIVE: CASE EVENT DATE: 20220530
